FAERS Safety Report 7777239-0 (Version None)
Quarter: 2011Q3

REPORT INFORMATION
  Report Type: 
  Country: None (occurrence: None)
  Receive Date: 20110926
  Receipt Date: 20110913
  Transmission Date: 20111222
  Serious: Yes (Other)
  Sender: FDA-Public Use
  Company Number: PHHY2011US28319

PATIENT
  Sex: Female

DRUGS (10)
  1. MYSOLINE [Concomitant]
     Dosage: 0.5 DF, BID AFTER A WEEK 1 FULL TAB BID
  2. GILENYA [Suspect]
     Dosage: 1 DF, QD
     Route: 048
  3. DETROL [Concomitant]
     Dosage: 1 DF, QHS
     Route: 048
  4. MACRODANTIN [Concomitant]
     Dosage: 25 MG, UNK
  5. FAMPRIDINE [Concomitant]
     Dosage: 10 MG, UNK
  6. GILENYA [Suspect]
     Indication: MULTIPLE SCLEROSIS
     Dosage: 0.5 MG, QD
     Route: 048
     Dates: start: 20110325, end: 20110411
  7. PROTONIX [Concomitant]
     Dosage: 40 MG, UNK
  8. CATHETERIZATION [Concomitant]
     Dosage: UNK UKN, 5QD
  9. COLACE [Concomitant]
     Dosage: 50 MG, UNK
  10. FERROUS SULFATE TAB [Concomitant]
     Dosage: UNK UKN, UNK

REACTIONS (5)
  - FATIGUE [None]
  - WHITE BLOOD CELL COUNT DECREASED [None]
  - VISUAL IMPAIRMENT [None]
  - PLATELET COUNT DECREASED [None]
  - RED BLOOD CELL COUNT DECREASED [None]
